FAERS Safety Report 17966655 (Version 2)
Quarter: 2020Q3

REPORT INFORMATION
  Report Type: Report from Study
  Country: None (occurrence: JP)
  Receive Date: 20200630
  Receipt Date: 20200706
  Transmission Date: 20201103
  Serious: Yes (Death, Hospitalization)
  Sender: FDA-Public Use
  Company Number: JP-ABBVIE-17P-087-2052699-00

PATIENT
  Age: 77 Year
  Sex: Female
  Weight: 43 kg

DRUGS (30)
  1. DUODOPA [Suspect]
     Active Substance: CARBIDOPA\LEVODOPA
     Dosage: MD: 7.0 ML?CD: 2.0 ML/HR ? 16 HRS?ED: 1 ML/UNIT ? 1 TIME
     Route: 050
     Dates: start: 20171010, end: 20171011
  2. DUODOPA [Suspect]
     Active Substance: CARBIDOPA\LEVODOPA
     Dosage: MD: 7.0 ML?CD: 1.7 ML/HR ? 16 HRS?ED: 1 ML/UNIT ? 1 TIMES
     Route: 050
     Dates: start: 20180410, end: 20180424
  3. DUODOPA [Suspect]
     Active Substance: CARBIDOPA\LEVODOPA
     Dosage: MD: 6.3 ML, CD: 1.8 ML/HR ? 16 HRS, ED: 1 ML/UNIT ? 1 TIME
     Route: 050
     Dates: start: 20170816, end: 20170912
  4. DUODOPA [Suspect]
     Active Substance: CARBIDOPA\LEVODOPA
     Dosage: MD: 7.0 ML?CD: 1.8 ML/HR ? 16 HRS?ED: 1 ML/UNIT ? 1 TIMES
     Route: 050
     Dates: start: 20181002, end: 20181023
  5. AMANTADINE HYDROCHLORIDE. [Concomitant]
     Active Substance: AMANTADINE HYDROCHLORIDE
     Indication: DYSKINESIA
     Route: 048
     Dates: start: 20181113
  6. MAGNESIUM OXIDE. [Concomitant]
     Active Substance: MAGNESIUM OXIDE
     Indication: PRODUCT USED FOR UNKNOWN INDICATION
     Route: 048
  7. DUODOPA [Suspect]
     Active Substance: CARBIDOPA\LEVODOPA
     Indication: PARKINSON^S DISEASE
     Dosage: MD 6.3 ML CD 1.5 ML ? 15 HRS
     Route: 050
     Dates: start: 20170429, end: 20170510
  8. DUODOPA [Suspect]
     Active Substance: CARBIDOPA\LEVODOPA
     Dosage: MD: 7.0 ML?CD: 1.9 ML/HR ? 16 HRS?ED: 1 ML/UNIT ? 1 TIMES
     Route: 050
     Dates: start: 20180424, end: 20180925
  9. REBAMIPIDE [Concomitant]
     Active Substance: REBAMIPIDE
     Indication: PRODUCT USED FOR UNKNOWN INDICATION
     Route: 048
  10. RAMELTEON [Concomitant]
     Active Substance: RAMELTEON
     Indication: PRODUCT USED FOR UNKNOWN INDICATION
     Route: 048
  11. CARBIDOPA AND LEVODOPA [Concomitant]
     Active Substance: CARBIDOPA\LEVODOPA
     Indication: PRODUCT USED FOR UNKNOWN INDICATION
     Route: 048
     Dates: start: 20171012, end: 20171121
  12. DUODOPA [Suspect]
     Active Substance: CARBIDOPA\LEVODOPA
     Dosage: MD: 7.0 ML?CD: 1.7 ML/HR ? 16 HRS?ED: 1 ML/UNIT ? 1 TIMES?20 MG/ML 5 MG/ML
     Route: 050
     Dates: start: 20181023, end: 20181113
  13. SODIUM VALPROATE [Concomitant]
     Active Substance: VALPROATE SODIUM
     Indication: PRODUCT USED FOR UNKNOWN INDICATION
     Route: 048
  14. SUVOREXANT. [Concomitant]
     Active Substance: SUVOREXANT
     Indication: PRODUCT USED FOR UNKNOWN INDICATION
     Route: 048
     Dates: start: 20180313
  15. DUODOPA [Suspect]
     Active Substance: CARBIDOPA\LEVODOPA
     Dosage: MD 6.3 ML CD 1.8 ML ? 16 HRS ED 2.0 ML ? 1 TIME
     Route: 050
     Dates: start: 20170510, end: 20170815
  16. DUODOPA [Suspect]
     Active Substance: CARBIDOPA\LEVODOPA
     Dosage: MD: 7.0 ML?CD: 2.2 ML/HR ? 16 HRS?ED: 1 ML/UNIT ? 1 TIME
     Route: 050
     Dates: start: 20170914, end: 20171010
  17. DUODOPA [Suspect]
     Active Substance: CARBIDOPA\LEVODOPA
     Dosage: MD: 7.0 ML?CD: 2.0 ML/HR ? 16 HRS?ED: 1 ML/UNIT ? 1 TIME
     Route: 050
     Dates: start: 20171121, end: 20180313
  18. DUODOPA [Suspect]
     Active Substance: CARBIDOPA\LEVODOPA
     Dosage: MD: 7.0 ML?CD: 2.0 ML/HR ? 16 HRS?ED: 1 ML/UNIT ? 1 TIMES
     Route: 050
     Dates: start: 20181127
  19. AMANTADINE HYDROCHLORIDE. [Concomitant]
     Active Substance: AMANTADINE HYDROCHLORIDE
     Indication: PARKINSON^S DISEASE
     Route: 048
     Dates: start: 20181023, end: 20181113
  20. RIVASTIGMINE. [Concomitant]
     Active Substance: RIVASTIGMINE
     Indication: PRODUCT USED FOR UNKNOWN INDICATION
     Route: 061
  21. TRAMADOL HYDROCHLORIDE. [Concomitant]
     Active Substance: TRAMADOL HYDROCHLORIDE
     Indication: PRODUCT USED FOR UNKNOWN INDICATION
     Route: 048
     Dates: start: 20180703, end: 20180717
  22. LOXOPROFEN SODIUM HYDRATE [Concomitant]
     Active Substance: LOXOPROFEN SODIUM DIHYDRATE
     Indication: PRODUCT USED FOR UNKNOWN INDICATION
     Route: 048
     Dates: start: 20180807
  23. PREGABALIN. [Concomitant]
     Active Substance: PREGABALIN
     Indication: PRODUCT USED FOR UNKNOWN INDICATION
     Route: 048
     Dates: start: 20181211, end: 20190107
  24. DUODOPA [Suspect]
     Active Substance: CARBIDOPA\LEVODOPA
     Dosage: MD: 7.0 ML?CD: 2.0 ML/HR ? 16 HRS?ED: 1 ML/UNIT ? 1 TIME
     Route: 050
     Dates: start: 20170912, end: 20170914
  25. DUODOPA [Suspect]
     Active Substance: CARBIDOPA\LEVODOPA
     Dosage: MD: 7.0 ML?CD: 1.7 ML/HR ? 16 HRS?ED: 1 ML/UNIT ? 1 TIMES
     Route: 050
     Dates: start: 20180925, end: 20181002
  26. DUODOPA [Suspect]
     Active Substance: CARBIDOPA\LEVODOPA
     Dosage: MD: 7.0 ML?CD: 1.9 ML/HR ? 16 HRS?ED: 1 ML/UNIT ? 1 TIMES
     Route: 050
     Dates: start: 20181113, end: 20181127
  27. YOKUKANSAN [Concomitant]
     Active Substance: HERBALS
     Indication: PRODUCT USED FOR UNKNOWN INDICATION
     Route: 048
     Dates: end: 20170911
  28. CLOSTRIDIUM BUTYRICUM [Concomitant]
     Active Substance: CLOSTRIDIUM BUTYRICUM SPORES STRAIN M-55
     Indication: PRODUCT USED FOR UNKNOWN INDICATION
     Route: 048
     Dates: start: 20180925, end: 20190402
  29. DUODOPA [Suspect]
     Active Substance: CARBIDOPA\LEVODOPA
     Dosage: MD: 7.0 ML?CD: 1.9 ML/HR ? 16 HRS?ED: 1 ML/UNIT ? 1 TIMES
     Route: 050
     Dates: start: 20180313, end: 20180410
  30. CARBAMAZEPINE. [Concomitant]
     Active Substance: CARBAMAZEPINE
     Indication: PRODUCT USED FOR UNKNOWN INDICATION
     Route: 048
     Dates: start: 20180612

REACTIONS (13)
  - Product storage error [Unknown]
  - Mobility decreased [Unknown]
  - Interstitial lung disease [Fatal]
  - Product administration error [Unknown]
  - Fatigue [Unknown]
  - Gait inability [Unknown]
  - Malaise [Unknown]
  - Stoma site hypergranulation [Unknown]
  - Stoma site discharge [Unknown]
  - Dysphonia [Unknown]
  - Asthenia [Unknown]
  - Hypokinesia [Unknown]
  - Product storage error [Recovered/Resolved]

NARRATIVE: CASE EVENT DATE: 20170714
